FAERS Safety Report 10023761 (Version 1)
Quarter: 2014Q1

REPORT INFORMATION
  Report Type: Spontaneous
  Country: US (occurrence: None)
  Receive Date: 20140304
  Receipt Date: 20140304
  Transmission Date: 20141002
  Serious: Yes (Other)
  Sender: FDA-Public Use
  Company Number: RB-29129-2013

PATIENT
  Age: 25 Year
  Sex: Female

DRUGS (1)
  1. SUBOXONE [Suspect]

REACTIONS (5)
  - Throat tightness [None]
  - Hypersensitivity [None]
  - Headache [None]
  - Nausea [None]
  - Drug dependence [None]
